FAERS Safety Report 10457545 (Version 2)
Quarter: 2014Q4

REPORT INFORMATION
  Report Type: Report from Study
  Country: BR (occurrence: BR)
  Receive Date: 20140916
  Receipt Date: 20141030
  Transmission Date: 20150528
  Serious: Yes (Other)
  Sender: FDA-Public Use
  Company Number: PHHY2014BR118313

PATIENT
  Age: 80 Year
  Sex: Female
  Weight: 80.62 kg

DRUGS (4)
  1. DAFLON (DIOSMIN/HESPERIDIN) [Concomitant]
     Active Substance: DIOSMIN\HESPERIDIN
     Indication: CARDIOVASCULAR DISORDER
     Dosage: 1 DF, DAILY
     Dates: start: 201407
  2. EXELON PATCH [Suspect]
     Active Substance: RIVASTIGMINE
     Indication: OFF LABEL USE
  3. VENALOT (TROXERUTIN/COUMARIN) [Concomitant]
     Active Substance: COUMARIN\TROXERUTIN
     Indication: CARDIOVASCULAR DISORDER
     Dosage: 1 DF, DAILY
     Dates: start: 201407
  4. EXELON PATCH [Suspect]
     Active Substance: RIVASTIGMINE
     Indication: MULTIPLE SCLEROSIS
     Dosage: 1 DF, DAILY
     Route: 062
     Dates: start: 201405

REACTIONS (5)
  - Weight decreased [Unknown]
  - Decreased appetite [Recovering/Resolving]
  - Thrombosis [Recovering/Resolving]
  - Pneumonia [Recovering/Resolving]
  - Application site erythema [Recovering/Resolving]

NARRATIVE: CASE EVENT DATE: 20140803
